FAERS Safety Report 5333247-0 (Version None)
Quarter: 2007Q2

REPORT INFORMATION
  Report Type: 
  Country: None (occurrence: None)
  Receive Date: 20070524
  Receipt Date: 20070511
  Transmission Date: 20071010
  Serious: Yes (Hospitalization)
  Sender: FDA-Public Use
  Company Number: US-JNJFOC-20070503631

PATIENT
  Sex: Female
  Weight: 48.99 kg

DRUGS (3)
  1. DURAGESIC-100 [Suspect]
     Indication: PAIN
     Route: 062
  2. HUMIRA [Concomitant]
     Indication: CROHN'S DISEASE
     Dosage: 40MG / 0.8ML
     Route: 050
  3. VICODIN [Concomitant]
     Indication: BREAKTHROUGH PAIN
     Route: 048

REACTIONS (6)
  - DELIRIUM [None]
  - HYPERHIDROSIS [None]
  - NEPHROLITHIASIS [None]
  - RENAL PAIN [None]
  - TREMOR [None]
  - UTERINE POLYP [None]
